FAERS Safety Report 21743677 (Version 1)
Quarter: 2022Q4

REPORT INFORMATION
  Report Type: Report from Study
  Country: IT (occurrence: IT)
  Receive Date: 20221217
  Receipt Date: 20221217
  Transmission Date: 20230113
  Serious: Yes (Other)
  Sender: FDA-Public Use
  Company Number: None

PATIENT
  Age: 65 Year
  Sex: Male
  Weight: 83 kg

DRUGS (4)
  1. CARBOPLATIN [Suspect]
     Active Substance: CARBOPLATIN
     Indication: Lung adenocarcinoma
     Dosage: DOSAGE: 670 UNIT OF MEASUREMENT: MILLIGRAM
  2. PEMETREXED [Suspect]
     Active Substance: PEMETREXED
     Indication: Lung adenocarcinoma
     Dosage: DOSAGE: 1000 UNIT OF MEASUREMENT: MILLIGRAM
  3. IPILIMUMAB [Suspect]
     Active Substance: IPILIMUMAB
     Indication: Lung adenocarcinoma
     Dosage: DOSAGE: 83 UNIT OF MEASUREMENT: MILLIGRAM
  4. NIVOLUMAB [Suspect]
     Active Substance: NIVOLUMAB
     Indication: Lung adenocarcinoma
     Dosage: DOSAGE: 360 UNIT OF MEASUREMENT: MILLIGRAM

REACTIONS (1)
  - Pancreatic toxicity [Unknown]

NARRATIVE: CASE EVENT DATE: 20221121
